FAERS Safety Report 6655806-5 (Version None)
Quarter: 2010Q1

REPORT INFORMATION
  Report Type: 
  Country: None (occurrence: None)
  Receive Date: 20100329
  Receipt Date: 20100316
  Transmission Date: 20100710
  Serious: Yes (Other)
  Sender: FDA-Public Use
  Company Number: US-ROCHE-692864

PATIENT
  Age: 54 Year
  Sex: Female

DRUGS (7)
  1. BONIVA [Suspect]
     Indication: OSTEOPOROSIS
     Dosage: FORM: PILL
     Route: 048
  2. BONIVA [Suspect]
     Route: 065
  3. ACTONEL [Suspect]
     Indication: DRUG USE FOR UNKNOWN INDICATION
     Route: 048
  4. FOSAMAX [Suspect]
     Indication: DRUG USE FOR UNKNOWN INDICATION
     Route: 048
  5. PREDNISONE [Concomitant]
     Dosage: FOR 7 MONTHS
  6. KEPPRA [Concomitant]
  7. CALCIUM/VITAMIN D [Concomitant]
     Dosage: NAME RPTD AS ^CALCIUM WITH D^

REACTIONS (5)
  - ASTHENIA [None]
  - BONE DENSITY ABNORMAL [None]
  - BONE DENSITY DECREASED [None]
  - OSTEOPOROSIS [None]
  - THROAT TIGHTNESS [None]
